FAERS Safety Report 10052033 (Version 1)
Quarter: 2014Q2

REPORT INFORMATION
  Report Type: Spontaneous
  Country: US (occurrence: US)
  Receive Date: 20140402
  Receipt Date: 20140402
  Transmission Date: 20141212
  Serious: No
  Sender: FDA-Public Use
  Company Number: US-009507513-1403USA003152

PATIENT
  Sex: Female

DRUGS (4)
  1. DULERA [Suspect]
     Indication: ASTHMA
     Dosage: 200MCG/5MCG
     Route: 048
     Dates: start: 2011
  2. DULERA [Suspect]
     Dosage: 100MCG/5MCG
     Route: 048
  3. SINGULAIR [Concomitant]
     Route: 048
  4. QNASL [Concomitant]

REACTIONS (5)
  - Haemorrhage [Recovered/Resolved]
  - Contusion [Recovered/Resolved]
  - Injury [Recovered/Resolved]
  - Drug dose omission [Unknown]
  - Product quality issue [Unknown]
